FAERS Safety Report 4850642-4 (Version None)
Quarter: 2005Q4

REPORT INFORMATION
  Report Type: 
  Country: None (occurrence: None)
  Receive Date: 20051208
  Receipt Date: 20051130
  Transmission Date: 20060501
  Serious: Yes (Life-Threatening, Hospitalization)
  Sender: FDA-Public Use
  Company Number: A-CH2005-10940

PATIENT
  Age: 72 Year
  Sex: Male
  Weight: 83 kg

DRUGS (8)
  1. TRACLEER [Suspect]
     Indication: PULMONARY HYPERTENSION
     Dosage: 31.25 MG, BID, ORAL
     Route: 048
     Dates: start: 20050901, end: 20050929
  2. ANTI VITAMIN K [Concomitant]
  3. SERETIDE            (FLUTICASONE PROPIONATE,  SALMETEROL) [Concomitant]
  4. ACE INHIBITOR NOS [Concomitant]
  5. FUROSEMIDE [Concomitant]
  6. OXYGEN (OXYGEN) [Concomitant]
  7. PREVISCAN (FLUINDIONE) [Concomitant]
  8. BRONCHODUAL    (IPRATROPIUM BROMIDE, FENOTEROL HYDROBROMIDE) [Concomitant]

REACTIONS (8)
  - DYSPNOEA EXACERBATED [None]
  - HAEMOPTYSIS [None]
  - HYPOXIA [None]
  - INFECTION [None]
  - LUNG DISORDER [None]
  - MYCOBACTERIUM AVIUM COMPLEX INFECTION [None]
  - PULMONARY ALVEOLAR HAEMORRHAGE [None]
  - RALES [None]
